FAERS Safety Report 5471630-3 (Version None)
Quarter: 2007Q3

REPORT INFORMATION
  Report Type: 
  Country: None (occurrence: None)
  Receive Date: 20070928
  Receipt Date: 20070307
  Transmission Date: 20080115
  Serious: No
  Sender: FDA-Public Use
  Company Number: US-BRISTOL-MYERS SQUIBB COMPANY-13679980

PATIENT
  Age: 53 Year
  Sex: Male
  Weight: 112 kg

DRUGS (7)
  1. DEFINITY [Suspect]
     Indication: ECHOCARDIOGRAM
     Dosage: DOSE VALUE: 3 TO 4 CC
     Route: 042
     Dates: start: 20070214, end: 20070214
  2. ASPIRIN [Concomitant]
  3. PLAVIX [Concomitant]
  4. VYTORIN [Concomitant]
     Dosage: 10/40MG PER DAY
  5. METOPROLOL TARTRATE [Concomitant]
  6. LISINOPRIL [Concomitant]
  7. WARFARIN [Concomitant]

REACTIONS (3)
  - CHEST DISCOMFORT [None]
  - CHEST PAIN [None]
  - FEELING ABNORMAL [None]
